FAERS Safety Report 7688019-9 (Version None)
Quarter: 2011Q3

REPORT INFORMATION
  Report Type: 
  Country: None (occurrence: None)
  Receive Date: 20110817
  Receipt Date: 20110812
  Transmission Date: 20111222
  Serious: Yes (Other)
  Sender: FDA-Public Use
  Company Number: US-PFIZER INC-2011118795

PATIENT
  Sex: Female

DRUGS (4)
  1. ATENOLOL [Concomitant]
     Dosage: UNK
     Dates: start: 19980101
  2. CHANTIX [Suspect]
     Indication: SMOKING CESSATION THERAPY
     Dosage: UNK,
     Dates: start: 20070701, end: 20070701
  3. ACETYLSALICYLIC ACID [Concomitant]
     Dosage: UNK,
     Dates: start: 19980101
  4. ZOCOR [Concomitant]
     Indication: BLOOD CHOLESTEROL INCREASED
     Dosage: UNK,
     Dates: start: 20060101, end: 20110101

REACTIONS (5)
  - DEPRESSION [None]
  - SUICIDAL IDEATION [None]
  - AGGRESSION [None]
  - ABNORMAL DREAMS [None]
  - ANXIETY [None]
